FAERS Safety Report 9224125 (Version 3)
Quarter: 2013Q3

REPORT INFORMATION
  Report Type: Spontaneous
  Country: US (occurrence: US)
  Receive Date: 20130411
  Receipt Date: 20130916
  Transmission Date: 20140515
  Serious: No
  Sender: FDA-Public Use
  Company Number: US-PFIZER INC-2013113771

PATIENT
  Age: 46 Year
  Sex: Female
  Weight: 73.92 kg

DRUGS (3)
  1. LYRICA [Suspect]
     Indication: FIBROMYALGIA
     Dosage: 75 MG, 2X/DAY
     Route: 048
     Dates: end: 201303
  2. CYMBALTA [Concomitant]
     Dosage: UNK
  3. LORTAB [Concomitant]
     Dosage: 5.5 MG, UNK

REACTIONS (4)
  - Blood cholesterol increased [Unknown]
  - Gait disturbance [Not Recovered/Not Resolved]
  - Pain in extremity [Not Recovered/Not Resolved]
  - Weight decreased [Unknown]
